FAERS Safety Report 22197708 (Version 2)
Quarter: 2023Q4

REPORT INFORMATION
  Report Type: Report from Study
  Country: BR (occurrence: None)
  Receive Date: 20230411
  Receipt Date: 20231011
  Transmission Date: 20240110
  Serious: Yes (Hospitalization)
  Sender: FDA-Public Use
  Company Number: BR-ROCHE-3191104

PATIENT
  Age: 67 Year
  Sex: Female
  Weight: 65.2 kg

DRUGS (13)
  1. MOSUNETUZUMAB [Suspect]
     Active Substance: MOSUNETUZUMAB
     Indication: Non-Hodgkin^s lymphoma unspecified histology indolent
     Dosage: ON 30-AUG-2022 2:25 PM, RECEIVED MOST RECENT DOSE OF STUDY DRUG (30 MG) PRIOR TO AE?ON 30-AUG-2022 4
     Route: 042
     Dates: start: 20220118
  2. LENALIDOMIDE [Suspect]
     Active Substance: LENALIDOMIDE
     Indication: Non-Hodgkin^s lymphoma unspecified histology indolent
     Dosage: ON 15/AUG/2022, RECEIVED MOST RECENT DOSE OF STUDY DRUG (20 MG) PRIOR TO AE/SAE
     Route: 048
     Dates: start: 20220208
  3. DILTIAZEM [Concomitant]
     Active Substance: DILTIAZEM
     Indication: Atrial septal defect
     Route: 048
  4. VONOPRAZAN [Concomitant]
     Active Substance: VONOPRAZAN
     Indication: Gastrooesophageal reflux disease
     Route: 048
     Dates: start: 20211201
  5. ALPRAZOLAM [Concomitant]
     Active Substance: ALPRAZOLAM
     Indication: Insomnia
  6. TRAZODONE HYDROCHLORIDE [Concomitant]
     Active Substance: TRAZODONE HYDROCHLORIDE
     Indication: Insomnia
     Route: 048
  7. ACETAMINOPHEN [Concomitant]
     Active Substance: ACETAMINOPHEN
     Route: 048
     Dates: start: 20220118
  8. DEXAMETHASONE [Concomitant]
     Active Substance: DEXAMETHASONE
     Route: 042
     Dates: start: 20220118
  9. DIPHENHYDRAMINE [Concomitant]
     Active Substance: DIPHENHYDRAMINE
     Route: 042
     Dates: start: 20220118
  10. TOBRADEX [Concomitant]
     Active Substance: DEXAMETHASONE\TOBRAMYCIN
     Indication: Corneal lesion
     Route: 047
     Dates: start: 20220330
  11. LOSARTAN [Concomitant]
     Active Substance: LOSARTAN
     Indication: Hypertension
     Route: 048
     Dates: start: 20220802
  12. CIPROFLOXACIN [Concomitant]
     Active Substance: CIPROFLOXACIN
     Indication: Diarrhoea
     Route: 048
     Dates: start: 20220825, end: 20220830
  13. LEVOFLOXACIN [Concomitant]
     Active Substance: LEVOFLOXACIN
     Dates: start: 2022, end: 2022

REACTIONS (1)
  - Post-acute COVID-19 syndrome [Recovered/Resolved]

NARRATIVE: CASE EVENT DATE: 20220927
